FAERS Safety Report 13792785 (Version 1)
Quarter: 2017Q3

REPORT INFORMATION
  Report Type: Spontaneous
  Country: US (occurrence: US)
  Receive Date: 20170725
  Receipt Date: 20170725
  Transmission Date: 20171127
  Serious: Yes (Disabling)
  Sender: FDA-Public Use
  Company Number: None

PATIENT
  Age: 72 Year
  Sex: Male
  Weight: 77.11 kg

DRUGS (3)
  1. LISINOPRIL. [Concomitant]
     Active Substance: LISINOPRIL
  2. AMIODARONE 200 MG [Suspect]
     Active Substance: AMIODARONE
     Indication: ATRIAL FIBRILLATION
     Dosage: 1 PILL DAILY ONCE AM 20 MONTHS
     Route: 048
     Dates: start: 201501, end: 201608
  3. METOPROLOL TARTRATE. [Concomitant]
     Active Substance: METOPROLOL TARTRATE

REACTIONS (4)
  - Shoulder operation [None]
  - Thyroiditis [None]
  - Chest X-ray abnormal [None]
  - Pulmonary toxicity [None]

NARRATIVE: CASE EVENT DATE: 20160816
